FAERS Safety Report 7042025-6 (Version None)
Quarter: 2010Q4

REPORT INFORMATION
  Report Type: 
  Country: None (occurrence: None)
  Receive Date: 20101013
  Receipt Date: 20100122
  Transmission Date: 20110411
  Serious: No
  Sender: FDA-Public Use
  Company Number: US-ASTRAZENECA-2010SE03224

PATIENT
  Age: 62 Year
  Sex: Female

DRUGS (8)
  1. SYMBICORT [Suspect]
     Route: 055
  2. PULMICORT [Suspect]
     Route: 055
  3. ALVESCO [Suspect]
     Indication: ASTHMA
     Route: 055
     Dates: start: 20091231
  4. ALBUTEROL [Concomitant]
  5. AZMACORT [Concomitant]
  6. SYNTHROID [Concomitant]
  7. RADIOACTIVE IODINE SOLUTION [Concomitant]
  8. ADVAIR DISKUS 100/50 [Concomitant]

REACTIONS (7)
  - BLOOD PRESSURE INCREASED [None]
  - DIZZINESS [None]
  - DYSPHONIA [None]
  - DYSPNOEA [None]
  - NASAL CONGESTION [None]
  - NASAL DISCOMFORT [None]
  - SNEEZING [None]
